FAERS Safety Report 9206882 (Version 2)
Quarter: 2013Q2

REPORT INFORMATION
  Report Type: Spontaneous
  Country: US (occurrence: US)
  Receive Date: 20130403
  Receipt Date: 20130513
  Transmission Date: 20140414
  Serious: No
  Sender: FDA-Public Use
  Company Number: US-JNJFOC-20130301154

PATIENT
  Age: 22 Year
  Sex: Male

DRUGS (2)
  1. INVEGA [Suspect]
     Indication: PSYCHOTIC DISORDER
     Route: 048
     Dates: start: 20130219
  2. HALDOL [Suspect]
     Indication: PSYCHOTIC DISORDER
     Route: 065
     Dates: start: 20130219

REACTIONS (8)
  - Tremor [Recovered/Resolved]
  - Hypersomnia [Recovered/Resolved]
  - Somnolence [Recovered/Resolved]
  - Drug effect increased [Recovered/Resolved]
  - Chills [Recovered/Resolved]
  - Hypertension [Recovered/Resolved]
  - Hyperhidrosis [Recovered/Resolved]
  - Sleep disorder [Recovered/Resolved]
